FAERS Safety Report 6405679-0 (Version None)
Quarter: 2009Q4

REPORT INFORMATION
  Report Type: 
  Country: None (occurrence: None)
  Receive Date: 20091019
  Receipt Date: 20091008
  Transmission Date: 20100525
  Serious: Yes (Other)
  Sender: FDA-Public Use
  Company Number: B0598511A

PATIENT
  Sex: Male

DRUGS (7)
  1. PACLITAXEL [Suspect]
     Indication: TESTICULAR GERM CELL TUMOUR MIXED STAGE III
     Dosage: 175MGM2 PER DAY
     Route: 042
  2. ETOPOSIDE [Suspect]
     Indication: TESTICULAR GERM CELL TUMOUR MIXED STAGE III
     Dosage: 100MGM2 PER DAY
     Route: 065
  3. BETAMETHASONE [Suspect]
     Indication: TESTICULAR GERM CELL TUMOUR MIXED STAGE III
     Route: 065
  4. RANITIDINE [Suspect]
     Indication: TESTICULAR GERM CELL TUMOUR MIXED STAGE III
     Route: 065
  5. BISULEPIN HYDROCHLORIDE [Suspect]
     Indication: TESTICULAR GERM CELL TUMOUR MIXED STAGE III
     Route: 065
  6. CISPLATIN [Suspect]
     Indication: TESTICULAR GERM CELL TUMOUR MIXED STAGE III
     Route: 065
  7. BLEOMYCIN SULFATE [Suspect]
     Indication: TESTICULAR GERM CELL TUMOUR MIXED STAGE III
     Route: 065

REACTIONS (4)
  - DRUG TOXICITY [None]
  - FEBRILE NEUTROPENIA [None]
  - RESPIRATORY FAILURE [None]
  - SEPTIC SHOCK [None]
